FAERS Safety Report 7004135-9 (Version None)
Quarter: 2010Q3

REPORT INFORMATION
  Report Type: 
  Country: None (occurrence: None)
  Receive Date: 20100920
  Receipt Date: 20100203
  Transmission Date: 20110219
  Serious: No
  Sender: FDA-Public Use
  Company Number: US-WYE-H13421810

PATIENT
  Sex: Male
  Weight: 106.69 kg

DRUGS (3)
  1. PRISTIQ [Suspect]
     Indication: DEPRESSION
     Route: 048
     Dates: start: 20090101, end: 20100126
  2. PRISTIQ [Suspect]
     Route: 048
     Dates: start: 20100127, end: 20100201
  3. REMERON [Concomitant]

REACTIONS (5)
  - DRUG INEFFECTIVE [None]
  - DRUG WITHDRAWAL SYNDROME [None]
  - FEAR [None]
  - FEELING ABNORMAL [None]
  - NIGHTMARE [None]
